FAERS Safety Report 7966715-3 (Version None)
Quarter: 2011Q4

REPORT INFORMATION
  Report Type: 
  Country: None (occurrence: None)
  Receive Date: 20111209
  Receipt Date: 20111205
  Transmission Date: 20120403
  Serious: No
  Sender: FDA-Public Use
  Company Number: US-BIOGENIDEC-2011BI046054

PATIENT
  Age: 33 Year
  Sex: Female

DRUGS (2)
  1. AVONEX [Concomitant]
     Indication: MULTIPLE SCLEROSIS
     Route: 030
  2. TYSABRI [Suspect]
     Indication: MULTIPLE SCLEROSIS
     Route: 042
     Dates: start: 20111102

REACTIONS (5)
  - URINARY RETENTION [None]
  - CENTRAL VENOUS CATHETERISATION [None]
  - MULTIPLE SCLEROSIS RELAPSE [None]
  - MALAISE [None]
  - URINARY TRACT INFECTION [None]
